FAERS Safety Report 19652351 (Version 1)
Quarter: 2021Q3

REPORT INFORMATION
  Report Type: Spontaneous
  Country: CN (occurrence: CN)
  Receive Date: 20210803
  Receipt Date: 20210803
  Transmission Date: 20211014
  Serious: Yes (Other)
  Sender: FDA-Public Use
  Company Number: CN-PFIZER INC-202100924061

PATIENT
  Age: 41 Year
  Sex: Male
  Weight: 86 kg

DRUGS (4)
  1. TRETINOIN. [Concomitant]
     Active Substance: TRETINOIN
     Indication: ACUTE PROMYELOCYTIC LEUKAEMIA
     Dosage: 30 MG, 2X/DAY
     Route: 048
     Dates: start: 20210616, end: 20210719
  2. OMEPRAZOLE SODIUM [Concomitant]
     Active Substance: OMEPRAZOLE SODIUM
     Indication: THERAPEUTIC PROCEDURE
     Dosage: 40 MG, 1X/DAY
     Route: 041
     Dates: start: 20210626, end: 20210718
  3. PIPERACILLIN/TAZOBACTAM [Suspect]
     Active Substance: PIPERACILLIN SODIUM\TAZOBACTAM SODIUM
     Indication: PNEUMONIA
     Dosage: 4.5 G, 3X/DAY
     Route: 041
     Dates: start: 20210711, end: 20210711
  4. TEICOPLANIN [Concomitant]
     Active Substance: TEICOPLANIN
     Indication: PNEUMONIA
     Dosage: 400 MG, 1X/DAY
     Route: 041
     Dates: start: 20210629, end: 20210712

REACTIONS (6)
  - Pyrexia [Recovering/Resolving]
  - Rash [Recovering/Resolving]
  - Granulocyte count decreased [Recovering/Resolving]
  - Sensation of foreign body [Recovering/Resolving]
  - Cough [Recovering/Resolving]
  - Breath sounds abnormal [Recovering/Resolving]

NARRATIVE: CASE EVENT DATE: 20210711
